FAERS Safety Report 8138277-1 (Version None)
Quarter: 2012Q1

REPORT INFORMATION
  Report Type: 
  Country: None (occurrence: None)
  Receive Date: 20120215
  Receipt Date: 20110809
  Transmission Date: 20120608
  Serious: No
  Sender: FDA-Public Use
  Company Number: US-SANOFI-AVENTIS-2011SA054403

PATIENT
  Sex: Female

DRUGS (8)
  1. LANTUS [Suspect]
     Dosage: DOSE:10 UNIT(S)
     Route: 058
     Dates: start: 20110722, end: 20110807
  2. LANTUS [Suspect]
     Dosage: DOSE:10 UNIT(S)
     Route: 058
     Dates: start: 20110722, end: 20110807
  3. SOLOSTAR [Suspect]
     Dates: start: 20110722
  4. METFORMIN HCL [Suspect]
     Route: 065
     Dates: start: 19950101
  5. GLYBURIDE [Suspect]
     Route: 065
     Dates: start: 19950101
  6. SOLOSTAR [Suspect]
     Indication: DIABETES MELLITUS
     Dates: start: 20110722
  7. LANTUS [Suspect]
     Dosage: DOSE:12 UNIT(S)
     Route: 058
     Dates: start: 20110808
  8. LANTUS [Suspect]
     Dosage: DOSE:12 UNIT(S)
     Route: 058
     Dates: start: 20110808

REACTIONS (5)
  - INJECTION SITE PAIN [None]
  - DRUG INEFFECTIVE [None]
  - VISUAL IMPAIRMENT [None]
  - BLOOD GLUCOSE INCREASED [None]
  - OFF LABEL USE [None]
